FAERS Safety Report 10879248 (Version 1)
Quarter: 2015Q1

REPORT INFORMATION
  Report Type: Spontaneous
  Country: US (occurrence: None)
  Receive Date: 20150224
  Receipt Date: 20150224
  Transmission Date: 20150721
  Serious: No
  Sender: FDA-Public Use
  Company Number: None

PATIENT
  Age: 61 Year
  Sex: Female

DRUGS (1)
  1. ENBREL [Suspect]
     Active Substance: ETANERCEPT
     Route: 058

REACTIONS (4)
  - Acne [None]
  - Dry mouth [None]
  - Pruritus generalised [None]
  - Injection site reaction [None]

NARRATIVE: CASE EVENT DATE: 20150223
